FAERS Safety Report 24022753 (Version 1)
Quarter: 2024Q2

REPORT INFORMATION
  Report Type: Spontaneous
  Country: US (occurrence: US)
  Receive Date: 20240627
  Receipt Date: 20240627
  Transmission Date: 20240716
  Serious: No
  Sender: FDA-Public Use
  Company Number: US-ROCHE-3542719

PATIENT
  Age: 47 Year
  Sex: Female

DRUGS (3)
  1. VABYSMO [Suspect]
     Active Substance: FARICIMAB\FARICIMAB-SVOA
     Indication: Neovascular age-related macular degeneration
     Dosage: INJECTION IN BOTH EYES
     Route: 050
     Dates: start: 20240322
  2. AVASTIN [Suspect]
     Active Substance: BEVACIZUMAB
     Indication: Neovascular age-related macular degeneration
     Dosage: INJECTION IN ONE EYE
     Route: 050
  3. EYLEA [Concomitant]
     Active Substance: AFLIBERCEPT
     Indication: Neovascular age-related macular degeneration

REACTIONS (7)
  - Eye inflammation [Recovering/Resolving]
  - Vision blurred [Recovering/Resolving]
  - Off label use [Unknown]
  - Visual impairment [Unknown]
  - Ophthalmological examination abnormal [Unknown]
  - Off label use [Unknown]
  - Eye discharge [Unknown]

NARRATIVE: CASE EVENT DATE: 20240322
